FAERS Safety Report 20910140 (Version 2)
Quarter: 2022Q4

REPORT INFORMATION
  Report Type: Report from Study
  Country: US (occurrence: US)
  Receive Date: 20220603
  Receipt Date: 20221115
  Transmission Date: 20230113
  Serious: Yes (Other)
  Sender: FDA-Public Use
  Company Number: US-NOVARTISTESTPH-NVSC2022US127820

PATIENT
  Sex: Male

DRUGS (1)
  1. ENTRESTO [Suspect]
     Active Substance: SACUBITRIL\VALSARTAN
     Indication: Cardiac failure
     Dosage: 100 MG, BID (49.51 MG, DISPERSIBLE TABLET)
     Route: 048
     Dates: start: 20220526

REACTIONS (6)
  - Ejection fraction decreased [Unknown]
  - Feeling abnormal [Unknown]
  - Fluid retention [Unknown]
  - Joint swelling [Unknown]
  - Headache [Unknown]
  - Dizziness [Unknown]
